FAERS Safety Report 7715117-3 (Version None)
Quarter: 2011Q3

REPORT INFORMATION
  Report Type: 
  Country: None (occurrence: None)
  Receive Date: 20110829
  Receipt Date: 20110817
  Transmission Date: 20111222
  Serious: Yes (Hospitalization)
  Sender: FDA-Public Use
  Company Number: PHHO2011DE14070

PATIENT
  Sex: Female
  Weight: 101 kg

DRUGS (3)
  1. NO TREATMENT RECEIVED [Suspect]
     Indication: RENAL TRANSPLANT
     Dosage: NO TREATMENT
  2. MYFORTIC [Suspect]
     Indication: RENAL TRANSPLANT
     Dosage: 1440 MG, UNK
     Dates: start: 20110512, end: 20110726
  3. SANDIMMUNE [Suspect]
     Dosage: 175 MG, UNK
     Dates: start: 20110512

REACTIONS (2)
  - URINARY TRACT INFECTION [None]
  - COMPLICATIONS OF TRANSPLANTED KIDNEY [None]
